FAERS Safety Report 7791389-4 (Version None)
Quarter: 2011Q4

REPORT INFORMATION
  Report Type: 
  Country: None (occurrence: None)
  Receive Date: 20111003
  Receipt Date: 20110920
  Transmission Date: 20120403
  Serious: Yes (Hospitalization, Other)
  Sender: FDA-Public Use
  Company Number: US-ELI_LILLY_AND_COMPANY-US201109006823

PATIENT
  Age: 56 Year
  Sex: Female

DRUGS (12)
  1. CYMBALTA [Suspect]
     Dosage: 60 MG, BID
     Dates: start: 20110827
  2. DEXMETHYLPHENIDATE HCL [Concomitant]
  3. IRON [Concomitant]
  4. BYETTA [Concomitant]
  5. ZINC [Concomitant]
  6. VITAMIN B6 [Concomitant]
  7. VITAMIN B-12 [Concomitant]
  8. PRAVASTATIN [Concomitant]
  9. METFORMIN HCL [Concomitant]
  10. CYMBALTA [Suspect]
     Indication: PAIN
     Dosage: 30 MG, UNKNOWN
  11. OMEPRAZOLE [Concomitant]
  12. ANGIOTENSIN II ANTAGONISTS [Concomitant]
     Indication: RENAL DISORDER

REACTIONS (2)
  - HEPATIC FAILURE [None]
  - OFF LABEL USE [None]
